FAERS Safety Report 7210984-4 (Version None)
Quarter: 2011Q1

REPORT INFORMATION
  Report Type: 
  Country: None (occurrence: None)
  Receive Date: 20110105
  Receipt Date: 20101228
  Transmission Date: 20110831
  Serious: Yes (Hospitalization)
  Sender: FDA-Public Use
  Company Number: B0668800A

PATIENT
  Sex: Female

DRUGS (4)
  1. FLOMOX [Concomitant]
     Indication: INFECTION PROPHYLAXIS
     Dosage: 300MG PER DAY
     Route: 048
     Dates: start: 20090712, end: 20090718
  2. CYTOTEC [Concomitant]
     Dosage: 600MCG PER DAY
     Route: 048
     Dates: start: 20090709
  3. ARIXTRA [Suspect]
     Indication: THROMBOSIS PROPHYLAXIS
     Dosage: 1.5MG PER DAY
     Route: 058
     Dates: start: 20090710, end: 20090719
  4. LOXOPROFEN [Concomitant]
     Indication: PROCEDURAL PAIN
     Dosage: 180MG PER DAY
     Route: 048
     Dates: start: 20090709

REACTIONS (2)
  - IMPAIRED HEALING [None]
  - WOUND SECRETION [None]
